FAERS Safety Report 6841143-2 (Version None)
Quarter: 2010Q3

REPORT INFORMATION
  Report Type: 
  Country: None (occurrence: None)
  Receive Date: 20100714
  Receipt Date: 20070626
  Transmission Date: 20110219
  Serious: No
  Sender: FDA-Public Use
  Company Number: US-PFIZER INC-2007053553

PATIENT
  Sex: Male
  Weight: 68.2 kg

DRUGS (4)
  1. CHANTIX [Suspect]
     Indication: SMOKING CESSATION THERAPY
     Dates: start: 20070101, end: 20070618
  2. PROZAC [Concomitant]
     Indication: DEPRESSION
  3. MIRAPEX [Concomitant]
     Indication: RESTLESS LEGS SYNDROME
  4. TRAZODONE HYDROCHLORIDE [Concomitant]
     Indication: INSOMNIA

REACTIONS (2)
  - ANGER [None]
  - IRRITABILITY [None]
